FAERS Safety Report 5541818-1 (Version None)
Quarter: 2007Q4

REPORT INFORMATION
  Report Type: 
  Country: None (occurrence: None)
  Receive Date: 20071210
  Receipt Date: 20071205
  Transmission Date: 20080405
  Serious: Yes (Other)
  Sender: FDA-Public Use
  Company Number: DE-JNJFOC-20071108795

PATIENT
  Age: 57 Year
  Sex: Female

DRUGS (2)
  1. RISPERDAL [Suspect]
     Indication: MANIA
     Route: 048
  2. VALPROATE SODIUM [Concomitant]
     Indication: MANIA
     Route: 065

REACTIONS (3)
  - EXTRAPYRAMIDAL DISORDER [None]
  - FALL [None]
  - HYPOTENSION [None]
